FAERS Safety Report 10818469 (Version 1)
Quarter: 2015Q1

REPORT INFORMATION
  Report Type: Spontaneous
  Country: AU (occurrence: AU)
  Receive Date: 20150218
  Receipt Date: 20150218
  Transmission Date: 20150721
  Serious: Yes (Hospitalization)
  Sender: FDA-Public Use
  Company Number: AU-PFIZER INC-2014315868

PATIENT
  Age: 53 Year
  Sex: Female
  Weight: 45 kg

DRUGS (2)
  1. CHAMPIX [Suspect]
     Active Substance: VARENICLINE TARTRATE
     Indication: SMOKING CESSATION THERAPY
     Dosage: UNK
     Route: 048
     Dates: start: 20141115, end: 20141119
  2. COVERSYL PLUS [Concomitant]
     Active Substance: INDAPAMIDE\PERINDOPRIL
     Indication: HYPERTENSION
     Dosage: UNK
     Route: 048
     Dates: start: 2012, end: 20141030

REACTIONS (15)
  - Hyponatraemia [Recovered/Resolved]
  - Disorientation [Unknown]
  - Speech disorder [Unknown]
  - Confusional state [Unknown]
  - Syncope [Unknown]
  - Gait disturbance [Unknown]
  - Activities of daily living impaired [Unknown]
  - Dizziness [Recovered/Resolved]
  - Somnolence [Unknown]
  - Feeling abnormal [Unknown]
  - Viral infection [Unknown]
  - Vomiting [Recovered/Resolved]
  - Impaired driving ability [Unknown]
  - Bradyphrenia [Unknown]
  - Visual impairment [Unknown]

NARRATIVE: CASE EVENT DATE: 201411
